FAERS Safety Report 23742258 (Version 4)
Quarter: 2024Q2

REPORT INFORMATION
  Report Type: Spontaneous
  Country: ES (occurrence: ES)
  Receive Date: 20240415
  Receipt Date: 20240422
  Transmission Date: 20240716
  Serious: Yes (Other)
  Sender: FDA-Public Use
  Company Number: ES-ABBVIE-5687480

PATIENT
  Age: 54 Year
  Sex: Male
  Weight: 93 kg

DRUGS (2)
  1. UPADACITINIB [Suspect]
     Active Substance: UPADACITINIB
     Indication: Axial spondyloarthritis
     Route: 048
     Dates: start: 20210918
  2. UPADACITINIB [Suspect]
     Active Substance: UPADACITINIB
     Indication: Axial spondyloarthritis
     Dosage: LAST ADMIN DATE WAS 2024
     Route: 048
     Dates: start: 20240208

REACTIONS (10)
  - Myocardial infarction [Unknown]
  - Electrocardiogram ST segment elevation [Recovered/Resolved]
  - Acute myocardial infarction [Recovered/Resolved]
  - Left ventricular dysfunction [Unknown]
  - Cardioversion [Recovered/Resolved]
  - Atrial fibrillation [Recovered/Resolved]
  - Revascularisation procedure [Unknown]
  - Cerebral thrombosis [Unknown]
  - Hypokinesia [Unknown]
  - Stent placement [Unknown]

NARRATIVE: CASE EVENT DATE: 20240202
